FAERS Safety Report 20643219 (Version 1)
Quarter: 2022Q1

REPORT INFORMATION
  Report Type: Spontaneous
  Country: FR (occurrence: FR)
  Receive Date: 20220328
  Receipt Date: 20220328
  Transmission Date: 20220423
  Serious: Yes (Hospitalization)
  Sender: FDA-Public Use
  Company Number: None

PATIENT
  Age: 25 Year
  Sex: Female

DRUGS (4)
  1. TRAMADOL [Suspect]
     Active Substance: TRAMADOL
     Indication: Product used for unknown indication
     Dosage: UP TO 1G/DAY (OR MORPHINE CONSUMPTION) , QD
     Route: 048
     Dates: start: 202010, end: 202110
  2. COCAINE [Suspect]
     Active Substance: COCAINE
     Indication: Product used for unknown indication
     Dosage: 1-2G AT LEAST ONCE A WEEK   QW
     Route: 045
  3. CANNABIS SATIVA SUBSP. INDICA TOP [Suspect]
     Active Substance: CANNABIS SATIVA SUBSP. INDICA TOP
     Indication: Product used for unknown indication
     Dosage: QD,6-10 JOINTS/DAY
     Route: 055
  4. MORPHINE [Suspect]
     Active Substance: MORPHINE
     Indication: Product used for unknown indication
     Dosage: UP TO 1G/DAY (OR MORPHINE CONSUMPTION)  , QD
     Route: 065
     Dates: start: 202010, end: 202110

REACTIONS (2)
  - Intentional product misuse [Unknown]
  - Drug dependence [Unknown]

NARRATIVE: CASE EVENT DATE: 20201001
